FAERS Safety Report 9367113 (Version 1)
Quarter: 2013Q2

REPORT INFORMATION
  Report Type: Spontaneous
  Country: FR (occurrence: FR)
  Receive Date: 20130625
  Receipt Date: 20130625
  Transmission Date: 20140414
  Serious: Yes (Hospitalization, Other)
  Sender: FDA-Public Use
  Company Number: FR-JNJFOC-20130609656

PATIENT
  Age: 50 Year
  Sex: Female

DRUGS (3)
  1. XEPLION [Suspect]
     Indication: SCHIZOPHRENIA
     Route: 030
  2. XEPLION [Suspect]
     Indication: SCHIZOPHRENIA
     Route: 030
  3. CLOZAPINE [Concomitant]
     Indication: PRODUCT USED FOR UNKNOWN INDICATION
     Route: 065

REACTIONS (2)
  - Delirium [Not Recovered/Not Resolved]
  - Schizophrenia [Unknown]
